FAERS Safety Report 8989355 (Version 4)
Quarter: 2013Q3

REPORT INFORMATION
  Report Type: Spontaneous
  Country: DK (occurrence: IT)
  Receive Date: 20121227
  Receipt Date: 20130821
  Transmission Date: 20140515
  Serious: Yes (Hospitalization)
  Sender: FDA-Public Use
  Company Number: IT-FRI-1000041218

PATIENT
  Age: 23 Year
  Sex: Male
  Weight: 70 kg

DRUGS (3)
  1. ESCITALOPRAM ORAL SOLUTION [Suspect]
     Indication: DEPRESSION
     Dosage: 15 GTT
     Route: 048
     Dates: start: 20120716, end: 20120816
  2. GROWTH HORMONE [Concomitant]
     Indication: PRADER-WILLI SYNDROME
     Dosage: 0.4 IU
  3. VALIUM [Concomitant]
     Dosage: 30 GTT

REACTIONS (2)
  - Psychomotor hyperactivity [Recovered/Resolved]
  - Tonic clonic movements [Recovered/Resolved]
